FAERS Safety Report 21704309 (Version 2)
Quarter: 2023Q1

REPORT INFORMATION
  Report Type: Report from Study
  Country: US (occurrence: US)
  Receive Date: 20221209
  Receipt Date: 20230113
  Transmission Date: 20230417
  Serious: Yes (Hospitalization)
  Sender: FDA-Public Use
  Company Number: US-Taiho Oncology Inc-EU-2022-01958

PATIENT
  Age: 70 Year
  Sex: Female
  Weight: 56.4 kg

DRUGS (13)
  1. FUTIBATINIB [Suspect]
     Active Substance: FUTIBATINIB
     Indication: Adenoid cystic carcinoma
     Dosage: CYCLE 1-4
     Route: 048
     Dates: start: 20220517, end: 20220727
  2. BINIMETINIB [Suspect]
     Active Substance: BINIMETINIB
     Indication: Adenoid cystic carcinoma
     Dosage: LEAD IN PHASE: 09/MAY/2022; CYCLE 1 START DATE : 17/MAY/2022 (CYCLE 1 - 4)
     Route: 048
     Dates: start: 20220509, end: 20220727
  3. SEVELAMER [Concomitant]
     Active Substance: SEVELAMER
     Indication: Hyperphosphataemia
     Route: 048
     Dates: start: 20220601
  4. OMEPRAZOLE [Concomitant]
     Active Substance: OMEPRAZOLE
     Indication: Gastrooesophageal reflux disease
     Route: 048
     Dates: start: 2013
  5. ATORVASTATIN [Concomitant]
     Active Substance: ATORVASTATIN
     Indication: Hyperlipidaemia
     Route: 048
     Dates: start: 20210721
  6. BACLOFEN [Concomitant]
     Active Substance: BACLOFEN
     Indication: Back pain
     Route: 038
     Dates: start: 20211014
  7. CITALOPRAM [Concomitant]
     Active Substance: CITALOPRAM HYDROBROMIDE
     Indication: Depression
     Route: 048
     Dates: start: 20160412
  8. GABAPENTIN [Concomitant]
     Active Substance: GABAPENTIN
     Indication: Back pain
     Route: 048
     Dates: start: 20160706
  9. TRAZODONE [Concomitant]
     Active Substance: TRAZODONE HYDROCHLORIDE
     Indication: Depression
     Dosage: QHS
     Route: 048
     Dates: start: 20160412
  10. VALACYCLOVIR [Concomitant]
     Active Substance: VALACYCLOVIR HYDROCHLORIDE
     Indication: Herpes virus infection
     Route: 048
     Dates: start: 2013
  11. DEXAMETHASONE [Concomitant]
     Active Substance: DEXAMETHASONE
     Indication: Stomatitis
     Dosage: PRN
     Route: 048
     Dates: start: 20220725
  12. DULCOLAX (BISACODYL) [Concomitant]
     Active Substance: BISACODYL
     Indication: Constipation
     Dosage: 1 TAB PRN
     Route: 048
     Dates: start: 20220523
  13. MAGNESIUM CITRATE [Concomitant]
     Active Substance: MAGNESIUM CITRATE
     Indication: Constipation
     Dosage: 1 BOTTLE, PRN
     Route: 048
     Dates: start: 20220606

REACTIONS (2)
  - Hypotension [Recovered/Resolved]
  - Dehydration [Recovered/Resolved]

NARRATIVE: CASE EVENT DATE: 20220727
